FAERS Safety Report 15020836 (Version 1)
Quarter: 2018Q2

REPORT INFORMATION
  Report Type: Spontaneous
  Country: FR (occurrence: FR)
  Receive Date: 20180618
  Receipt Date: 20180618
  Transmission Date: 20180711
  Serious: Yes (Hospitalization)
  Sender: FDA-Public Use
  Company Number: FR-CELGENEUS-FRA-20180600110

PATIENT
  Age: 51 Year
  Sex: Male
  Weight: 74 kg

DRUGS (3)
  1. OTEZLA [Suspect]
     Active Substance: APREMILAST
     Indication: PSORIASIS
     Route: 048
     Dates: start: 20180214, end: 201802
  2. ENSTILAR [Concomitant]
     Active Substance: BETAMETHASONE DIPROPIONATE\CALCIPOTRIENE HYDRATE
     Indication: PSORIASIS
     Dosage: 50 UG/0.5 MG/G
     Route: 061
  3. MIFLONIL [Concomitant]
     Active Substance: BUDESONIDE
     Indication: ASTHMA
     Route: 065
     Dates: start: 2017

REACTIONS (1)
  - Asthma [Recovering/Resolving]

NARRATIVE: CASE EVENT DATE: 201802
